FAERS Safety Report 24402576 (Version 3)
Quarter: 2024Q4

REPORT INFORMATION
  Report Type: Spontaneous
  Country: US (occurrence: US)
  Receive Date: 20241007
  Receipt Date: 20241111
  Transmission Date: 20250114
  Serious: No
  Sender: ROCHE
  Company Number: US-ROCHE-10000092714

PATIENT
  Age: 15 Year
  Sex: Female
  Weight: 58.96 kg

DRUGS (7)
  1. XOLAIR PFS [Suspect]
     Active Substance: OMALIZUMAB
     Indication: Asthma
     Dosage: 1300 MG PFS
     Route: 058
     Dates: start: 202312
  2. XOLAIR PFS [Suspect]
     Active Substance: OMALIZUMAB
     Dosage: 2 150 MG PFS
     Route: 058
  3. MELOXICAM [Concomitant]
     Active Substance: MELOXICAM
  4. AMITRIPTYLINE [Concomitant]
     Active Substance: AMITRIPTYLINE
  5. ALBUTEROL SULFATE [Concomitant]
     Active Substance: ALBUTEROL SULFATE
  6. EPINEPHRINE [Concomitant]
     Active Substance: EPINEPHRINE
  7. MESTINON [Concomitant]
     Active Substance: PYRIDOSTIGMINE BROMIDE

REACTIONS (10)
  - Asthma [Not Recovered/Not Resolved]
  - Ehlers-Danlos syndrome [Unknown]
  - Migraine [Recovered/Resolved]
  - COVID-19 [Recovered/Resolved]
  - Needle issue [Unknown]
  - Device difficult to use [Unknown]
  - Device defective [Unknown]
  - Product complaint [Unknown]
  - Wrong technique in product usage process [Unknown]
  - Product dose omission issue [Unknown]

NARRATIVE: CASE EVENT DATE: 20240101
